FAERS Safety Report 23234221 (Version 1)
Quarter: 2023Q4

REPORT INFORMATION
  Report Type: Spontaneous
  Country: FR (occurrence: FR)
  Receive Date: 20231128
  Receipt Date: 20231128
  Transmission Date: 20240110
  Serious: Yes (Other)
  Sender: FDA-Public Use
  Company Number: None

PATIENT
  Age: 15 Year
  Sex: Female
  Weight: 45 kg

DRUGS (2)
  1. ACETAMINOPHEN [Suspect]
     Active Substance: ACETAMINOPHEN
     Indication: Product used for unknown indication
     Dosage: 8.000G
     Route: 048
     Dates: start: 20230615
  2. CYAMEMAZINE [Suspect]
     Active Substance: CYAMEMAZINE
     Indication: Product used for unknown indication
     Dosage: 1.000DF
     Route: 048
     Dates: start: 20230615

REACTIONS (3)
  - Poisoning deliberate [Recovered/Resolved]
  - Somnolence [Unknown]
  - Coma [Unknown]

NARRATIVE: CASE EVENT DATE: 20230615
